FAERS Safety Report 23346122 (Version 1)
Quarter: 2023Q4

REPORT INFORMATION
  Report Type: Spontaneous
  Country: US (occurrence: None)
  Receive Date: 20231227
  Receipt Date: 20231227
  Transmission Date: 20240110
  Serious: Yes (Death)
  Sender: FDA-Public Use
  Company Number: None

PATIENT
  Sex: Female

DRUGS (13)
  1. FULPHILA [Suspect]
     Active Substance: PEGFILGRASTIM-JMDB
     Indication: Breast cancer female
     Route: 058
     Dates: start: 20231224, end: 20231227
  2. ADRIAMYCIN INJ [Concomitant]
  3. ALBUTEROL AER HFA [Concomitant]
  4. CINVANTI INJ [Concomitant]
  5. CYCLOPHOSPHA INJ [Concomitant]
  6. DEXAMETH PHO INJ [Concomitant]
  7. LEVOTHYROXIN TAB [Concomitant]
  8. NAPROXEN TAB [Concomitant]
  9. PALONOSETRON INJ [Concomitant]
  10. SINGULAIR TAB [Concomitant]
  11. SYMBICORT AER [Concomitant]
  12. UDENYCA INJ [Concomitant]
  13. VITAMIN D3 [Concomitant]

REACTIONS (1)
  - Death [None]
